FAERS Safety Report 8373779-4 (Version None)
Quarter: 2012Q2

REPORT INFORMATION
  Report Type: 
  Country: None (occurrence: None)
  Receive Date: 20120521
  Receipt Date: 20120517
  Transmission Date: 20120825
  Serious: Yes (Other)
  Sender: FDA-Public Use
  Company Number: PHEH2012US010405

PATIENT
  Age: 46 Year
  Sex: Female
  Weight: 81.179 kg

DRUGS (1)
  1. GILENYA [Suspect]
     Dosage: 0.5 MG, QD
     Route: 048
     Dates: start: 20120201

REACTIONS (2)
  - HYPOAESTHESIA [None]
  - GAIT DISTURBANCE [None]
